FAERS Safety Report 15952756 (Version 2)
Quarter: 2019Q2

REPORT INFORMATION
  Report Type: Spontaneous
  Country: US (occurrence: US)
  Receive Date: 20190211
  Receipt Date: 20190411
  Transmission Date: 20190711
  Serious: Yes (Other)
  Sender: FDA-Public Use
  Company Number: US-ASTRAZENECA-2018SF64554

PATIENT

DRUGS (25)
  1. PREDNISONE. [Concomitant]
     Active Substance: PREDNISONE
  2. LEVOTHYROXINE. [Concomitant]
     Active Substance: LEVOTHYROXINE
  3. CIPROFLOXACIN HYDROCHLORIDE. [Concomitant]
     Active Substance: CIPROFLOXACIN HYDROCHLORIDE
  4. CARVEDILOL. [Concomitant]
     Active Substance: CARVEDILOL
  5. PANTOPRAZOLE [Suspect]
     Active Substance: PANTOPRAZOLE
     Route: 065
     Dates: start: 1996, end: 2016
  6. HYDROCODONE [Concomitant]
     Active Substance: HYDROCODONE
  7. METRONIDAZOLE. [Concomitant]
     Active Substance: METRONIDAZOLE
  8. NYSTATIN. [Concomitant]
     Active Substance: NYSTATIN
  9. PANTOPRAZOLE [Suspect]
     Active Substance: PANTOPRAZOLE
     Dosage: 20.0MG UNKNOWN
     Route: 065
     Dates: start: 20160828
  10. AZATHIOPRINE. [Concomitant]
     Active Substance: AZATHIOPRINE
  11. MORPHINE SULFATE. [Concomitant]
     Active Substance: MORPHINE SULFATE
  12. NEXIUM [Suspect]
     Active Substance: ESOMEPRAZOLE MAGNESIUM
     Dosage: 40.0MG UNKNOWN
     Route: 048
     Dates: start: 200606, end: 200801
  13. FENTANYL. [Concomitant]
     Active Substance: FENTANYL
  14. LIDODERM [Concomitant]
     Active Substance: LIDOCAINE
  15. NEXIUM [Suspect]
     Active Substance: ESOMEPRAZOLE MAGNESIUM
     Route: 048
     Dates: start: 1996, end: 2016
  16. PANTOPRAZOLE [Suspect]
     Active Substance: PANTOPRAZOLE
     Dosage: 40.0MG UNKNOWN
     Route: 065
     Dates: start: 200802, end: 200805
  17. CYMBALTA [Concomitant]
     Active Substance: DULOXETINE HYDROCHLORIDE
  18. PREDNISONE. [Concomitant]
     Active Substance: PREDNISONE
  19. BACITRACIN. [Concomitant]
     Active Substance: BACITRACIN
  20. OMEPRAZOLE. [Suspect]
     Active Substance: OMEPRAZOLE
     Dosage: 20 MG40.0MG UNKNOWN
     Route: 048
     Dates: start: 201101, end: 201405
  21. TRIAMCINOLONE [Concomitant]
     Active Substance: TRIAMCINOLONE
  22. PREVACID [Suspect]
     Active Substance: LANSOPRAZOLE
     Route: 065
     Dates: start: 1996, end: 2016
  23. LISINOPRIL. [Concomitant]
     Active Substance: LISINOPRIL
  24. CEPHALEXIN. [Concomitant]
     Active Substance: CEPHALEXIN
  25. MUPIROCIN. [Concomitant]
     Active Substance: MUPIROCIN

REACTIONS (2)
  - Tubulointerstitial nephritis [Unknown]
  - Chronic kidney disease [Not Recovered/Not Resolved]
